FAERS Safety Report 11198267 (Version 1)
Quarter: 2015Q2

REPORT INFORMATION
  Report Type: Report from Study
  Country: FR (occurrence: FR)
  Receive Date: 20150618
  Receipt Date: 20150618
  Transmission Date: 20150821
  Serious: Yes (Other)
  Sender: FDA-Public Use
  Company Number: FR-BRISTOL-MYERS SQUIBB COMPANY-BMS-2015-038421

PATIENT
  Age: 32 Year
  Sex: Female

DRUGS (1)
  1. NIVOLUMAB [Suspect]
     Active Substance: NIVOLUMAB
     Indication: HODGKIN^S DISEASE
     Dosage: 3 MG/KG, UNK
     Route: 065
     Dates: start: 20150422

REACTIONS (2)
  - Off label use [Unknown]
  - Ophthalmic herpes simplex [Recovering/Resolving]

NARRATIVE: CASE EVENT DATE: 20150513
